FAERS Safety Report 5740167-6 (Version None)
Quarter: 2008Q2

REPORT INFORMATION
  Report Type: 
  Country: None (occurrence: None)
  Receive Date: 20080516
  Receipt Date: 20080506
  Transmission Date: 20081010
  Serious: Yes (Other)
  Sender: FDA-Public Use
  Company Number: US-ROCHE-562864

PATIENT
  Sex: Male

DRUGS (2)
  1. PEGASYS [Suspect]
     Indication: DRUG USE FOR UNKNOWN INDICATION
     Dosage: FORM: SYRINGE
     Route: 065
     Dates: start: 20070601
  2. PEGASYS [Suspect]
     Route: 065
     Dates: start: 20080201

REACTIONS (4)
  - DEPRESSION [None]
  - DEVICE LEAKAGE [None]
  - ILL-DEFINED DISORDER [None]
  - INFECTION [None]
